FAERS Safety Report 5164949-7 (Version None)
Quarter: 2006Q4

REPORT INFORMATION
  Report Type: 
  Country: None (occurrence: None)
  Receive Date: 20061124
  Receipt Date: 20061109
  Transmission Date: 20070319
  Serious: Yes (Hospitalization)
  Sender: FDA-Public Use
  Company Number: 2006141249

PATIENT
  Sex: Female
  Weight: 55 kg

DRUGS (3)
  1. SUTENT [Suspect]
     Indication: RENAL CELL CARCINOMA STAGE UNSPECIFIED
     Dosage: 50 MG (50 MG, 1 IN 1 D), ORAL
     Route: 048
     Dates: start: 20061010, end: 20061031
  2. MANIDON - SLOW RELEASE (VERAPAMIL HYDROCHLORIDE) [Concomitant]
  3. OXYCONTIN [Concomitant]

REACTIONS (3)
  - PLEURAL EFFUSION [None]
  - PNEUMONIA [None]
  - THROMBOCYTOPENIA [None]
